FAERS Safety Report 25902708 (Version 1)
Quarter: 2025Q4

REPORT INFORMATION
  Report Type: Spontaneous
  Country: US (occurrence: US)
  Receive Date: 20251009
  Receipt Date: 20251009
  Transmission Date: 20260118
  Serious: Yes (Other)
  Sender: COSETTE PHARMACEUTICALS INC
  Company Number: US-COSETTE-CP2025US001007

PATIENT
  Age: 58 Year
  Sex: Female

DRUGS (4)
  1. CEVIMELINE HYDROCHLORIDE [Suspect]
     Active Substance: CEVIMELINE HYDROCHLORIDE
     Indication: Sjogren^s syndrome
     Route: 065
  2. DIETARY SUPPLEMENT\HERBALS [Suspect]
     Active Substance: DIETARY SUPPLEMENT\HERBALS
     Indication: Product used for unknown indication
     Route: 048
  3. PHOSPHATIDYL SERINE [Concomitant]
     Active Substance: PHOSPHATIDYL SERINE
     Indication: Product used for unknown indication
     Route: 048
  4. HYDROXYCHLOROQUINE [Concomitant]
     Active Substance: HYDROXYCHLOROQUINE
     Indication: Subacute cutaneous lupus erythematosus
     Route: 065

REACTIONS (10)
  - Cholinergic syndrome [Recovered/Resolved]
  - Tachycardia [Recovered/Resolved]
  - Hyperhidrosis [Recovered/Resolved]
  - Malaise [Recovered/Resolved]
  - Nausea [Recovered/Resolved]
  - Headache [Recovered/Resolved]
  - Dizziness [Recovered/Resolved]
  - Rectal tenesmus [Recovered/Resolved]
  - Drug interaction [Unknown]
  - Overdose [Unknown]
